FAERS Safety Report 6523820-6 (Version None)
Quarter: 2009Q4

REPORT INFORMATION
  Report Type: 
  Country: None (occurrence: None)
  Receive Date: 20091231
  Receipt Date: 20091228
  Transmission Date: 20100525
  Serious: Yes (Death, Other)
  Sender: FDA-Public Use
  Company Number: GR-ROCHE-676786

PATIENT

DRUGS (3)
  1. BEVACIZUMAB [Suspect]
     Indication: BREAST CANCER
     Dosage: EVERY TWO WEEKS FOR SIX MONTHS
     Route: 065
  2. BEVACIZUMAB [Suspect]
     Dosage: EVERY THREE WEEKS
     Route: 065
  3. PACLITAXEL [Suspect]
     Indication: BREAST CANCER
     Dosage: EVERY TWO WEEKS
     Route: 065

REACTIONS (9)
  - ANAEMIA [None]
  - ARTERIAL THROMBOSIS [None]
  - FEBRILE NEUTROPENIA [None]
  - HYPERTENSION [None]
  - ISCHAEMIC STROKE [None]
  - NEUROPATHY PERIPHERAL [None]
  - NEUTROPENIA [None]
  - PROTEINURIA [None]
  - VENOUS THROMBOSIS [None]
